FAERS Safety Report 5549623-7 (Version None)
Quarter: 2007Q4

REPORT INFORMATION
  Report Type: 
  Country: None (occurrence: None)
  Receive Date: 20071210
  Receipt Date: 20070703
  Transmission Date: 20080405
  Serious: Yes (Hospitalization)
  Sender: FDA-Public Use
  Company Number: CLOF-10539

PATIENT
  Age: 12 Year
  Sex: Male
  Weight: 31.4 kg

DRUGS (14)
  1. CLOLAR [Suspect]
     Indication: ACUTE LYMPHOCYTIC LEUKAEMIA
     Dosage: 40 MG/M2 DAILY IV
     Route: 042
     Dates: start: 20070320, end: 20070324
  2. CLOLAR [Suspect]
     Indication: LEUKAEMIA RECURRENT
     Dosage: 40 MG/M2 DAILY IV
     Route: 042
     Dates: start: 20070320, end: 20070324
  3. CLOLAR [Suspect]
     Indication: ACUTE LYMPHOCYTIC LEUKAEMIA
     Dosage: 40 MG/M2 DAILY IV
     Route: 042
     Dates: start: 20070320, end: 20070324
  4. CLOLAR [Suspect]
     Indication: LEUKAEMIA RECURRENT
     Dosage: 40 MG/M2 DAILY IV
     Route: 042
     Dates: start: 20070320, end: 20070324
  5. CYTARABINE [Suspect]
     Indication: ACUTE LYMPHOCYTIC LEUKAEMIA
     Dosage: 1000 MG/M2 DAILY IV
     Route: 042
     Dates: start: 20070320, end: 20070324
  6. CYTARABINE [Suspect]
     Indication: LEUKAEMIA RECURRENT
     Dosage: 1000 MG/M2 DAILY IV
     Route: 042
     Dates: start: 20070320, end: 20070324
  7. PREDNISONE [Concomitant]
  8. ZOFRAN [Concomitant]
  9. PENTAMIDINE ISETHIONATE [Concomitant]
  10. NIFEDIPINE [Concomitant]
  11. FLUCONAZOLE [Concomitant]
  12. MAGNESIUM [Concomitant]
  13. POTASSIUM CHLORIDE [Concomitant]
  14. CREON [Concomitant]

REACTIONS (5)
  - KLEBSIELLA INFECTION [None]
  - LEUKAEMIA RECURRENT [None]
  - PLATELET COUNT ABNORMAL [None]
  - SEPSIS [None]
  - WHITE BLOOD CELL COUNT ABNORMAL [None]
